FAERS Safety Report 6828542-X (Version None)
Quarter: 2010Q3

REPORT INFORMATION
  Report Type: 
  Country: None (occurrence: None)
  Receive Date: 20100709
  Receipt Date: 20070213
  Transmission Date: 20110219
  Serious: No
  Sender: FDA-Public Use
  Company Number: US-PFIZER INC-2007012488

PATIENT
  Sex: Male
  Weight: 70.31 kg

DRUGS (10)
  1. CHANTIX [Suspect]
     Indication: SMOKING CESSATION THERAPY
     Dates: start: 20070206
  2. ZOCOR [Concomitant]
     Indication: BLOOD CHOLESTEROL INCREASED
  3. ZETIA [Concomitant]
     Indication: BLOOD CHOLESTEROL INCREASED
  4. GLUCOPHAGE [Concomitant]
     Indication: DIABETES MELLITUS
  5. ZYRTEC-D 12 HOUR [Concomitant]
  6. CELEBREX [Concomitant]
  7. NEXIUM [Concomitant]
  8. LEXAPRO [Concomitant]
  9. ALTACE [Concomitant]
  10. NEURONTIN [Concomitant]
     Indication: SPINAL OPERATION

REACTIONS (2)
  - NAUSEA [None]
  - THROAT IRRITATION [None]
